FAERS Safety Report 17570056 (Version 1)
Quarter: 2020Q1

REPORT INFORMATION
  Report Type: Report from Study
  Country: US (occurrence: US)
  Receive Date: 20200323
  Receipt Date: 20200323
  Transmission Date: 20200409
  Serious: Yes (Hospitalization, Other)
  Sender: FDA-Public Use
  Company Number: US-AUROBINDO-AUR-APL-2020-014393

PATIENT
  Age: 53 Year
  Sex: Male

DRUGS (12)
  1. QUETIAPINE. [Suspect]
     Active Substance: QUETIAPINE
     Indication: SUBSTANCE ABUSE
  2. OLANZAPINE. [Suspect]
     Active Substance: OLANZAPINE
     Indication: DEMENTIA
  3. QUETIAPINE. [Suspect]
     Active Substance: QUETIAPINE
     Indication: BORDERLINE PERSONALITY DISORDER
  4. DIVALPROEX [Suspect]
     Active Substance: DIVALPROEX SODIUM
     Indication: SUBSTANCE ABUSE
  5. OLANZAPINE. [Suspect]
     Active Substance: OLANZAPINE
     Indication: SUBSTANCE ABUSE
  6. QUETIAPINE. [Suspect]
     Active Substance: QUETIAPINE
     Indication: DEMENTIA
  7. QUETIAPINE. [Suspect]
     Active Substance: QUETIAPINE
     Indication: MAJOR DEPRESSION
     Dosage: 500 MILLIGRAM (IN DIVIDED DOSES)
     Route: 048
  8. OLANZAPINE. [Suspect]
     Active Substance: OLANZAPINE
     Indication: MAJOR DEPRESSION
     Dosage: 25 MILLIGRAM (IN DIVIDED DOSES)
     Route: 048
  9. DIVALPROEX [Suspect]
     Active Substance: DIVALPROEX SODIUM
     Indication: MAJOR DEPRESSION
     Dosage: 1000 MILLIGRAM (IN DIVIDED DOSES)
     Route: 065
  10. DIVALPROEX [Suspect]
     Active Substance: DIVALPROEX SODIUM
     Indication: BORDERLINE PERSONALITY DISORDER
  11. DIVALPROEX [Suspect]
     Active Substance: DIVALPROEX SODIUM
     Indication: DEMENTIA
  12. OLANZAPINE. [Suspect]
     Active Substance: OLANZAPINE
     Indication: BORDERLINE PERSONALITY DISORDER

REACTIONS (1)
  - Neuroleptic malignant syndrome [Recovering/Resolving]
